FAERS Safety Report 8151992-9 (Version None)
Quarter: 2012Q1

REPORT INFORMATION
  Report Type: 
  Country: None (occurrence: None)
  Receive Date: 20120221
  Receipt Date: 20120215
  Transmission Date: 20120608
  Serious: No
  Sender: FDA-Public Use
  Company Number: US-PFIZER INC-2012041124

PATIENT
  Sex: Male

DRUGS (7)
  1. ABILIFY [Concomitant]
     Dosage: UNK
  2. LITHIUM [Concomitant]
  3. BUSPAR [Concomitant]
     Dosage: UNK
  4. ENBREL [Concomitant]
     Dosage: UNK
  5. ALBUTEROL [Concomitant]
     Dosage: UNK
  6. CELEXA [Concomitant]
  7. LYRICA [Suspect]
     Dosage: 150 MG, 3X/DAY
     Route: 048

REACTIONS (2)
  - JOINT CREPITATION [None]
  - PSORIASIS [None]
